FAERS Safety Report 6551171-2 (Version None)
Quarter: 2010Q1

REPORT INFORMATION
  Report Type: 
  Country: None (occurrence: None)
  Receive Date: 20100121
  Receipt Date: 20100107
  Transmission Date: 20100710
  Serious: Yes (Other)
  Sender: FDA-Public Use
  Company Number: 2010AL000242

PATIENT
  Age: 31 Year
  Sex: Male

DRUGS (3)
  1. FEVERALL [Suspect]
  2. CLOZARIL [Concomitant]
  3. LANSOPRAZOLE [Concomitant]

REACTIONS (2)
  - OVERDOSE [None]
  - THROMBOCYTOSIS [None]
